FAERS Safety Report 5914118-5 (Version None)
Quarter: 2008Q4

REPORT INFORMATION
  Report Type: 
  Country: None (occurrence: None)
  Receive Date: 20081009
  Receipt Date: 20081007
  Transmission Date: 20090506
  Serious: Yes (Death)
  Sender: FDA-Public Use
  Company Number: US-TEVA-172597USA

PATIENT
  Sex: Female

DRUGS (7)
  1. CLOZAPINE [Suspect]
     Dosage: 100 MG AM,  300 MG HS
     Route: 048
     Dates: start: 20020101, end: 20080528
  2. VENLAFAXINE HYDROCHLORIDE [Concomitant]
     Dosage: 75 MG AM
  3. ACETYLSALICYLIC ACID SRT [Concomitant]
  4. LANSOPRAZOLE [Concomitant]
     Dosage: 30 MG AM
  5. INEGY [Concomitant]
     Dosage: 40/10 MG HS
  6. METFORMIN HCL [Concomitant]
     Dosage: 1000MG BID
  7. GLIPIZIDE [Concomitant]
     Dosage: 2.5 MG Q AM

REACTIONS (1)
  - DRUG TOXICITY [None]
